FAERS Safety Report 6076208-9 (Version None)
Quarter: 2009Q1

REPORT INFORMATION
  Report Type: 
  Country: None (occurrence: None)
  Receive Date: 20090212
  Receipt Date: 20090203
  Transmission Date: 20090719
  Serious: Yes (Other)
  Sender: FDA-Public Use
  Company Number: US-PFIZER INC-2009164762

PATIENT
  Sex: Female

DRUGS (1)
  1. LIPITOR [Suspect]
     Dates: start: 20080101

REACTIONS (5)
  - ARTHRALGIA [None]
  - JOINT SWELLING [None]
  - KNEE OPERATION [None]
  - MALAISE [None]
  - TENDERNESS [None]
